FAERS Safety Report 25144637 (Version 1)
Quarter: 2025Q2

REPORT INFORMATION
  Report Type: Spontaneous
  Country: BR (occurrence: BR)
  Receive Date: 20250401
  Receipt Date: 20250401
  Transmission Date: 20250717
  Serious: Yes (Other)
  Sender: AMERICAN REGENT
  Company Number: BR-AMERICAN REGENT INC-2025001310

PATIENT
  Sex: Male

DRUGS (1)
  1. VENOFER [Suspect]
     Active Substance: IRON SUCROSE
     Indication: Product used for unknown indication
     Route: 042

REACTIONS (1)
  - Bacteraemia [Unknown]
